FAERS Safety Report 25941797 (Version 1)
Quarter: 2025Q4

REPORT INFORMATION
  Report Type: Spontaneous
  Country: US (occurrence: None)
  Receive Date: 20251020
  Receipt Date: 20251020
  Transmission Date: 20260118
  Serious: No
  Sender: FDA-CTU
  Company Number: None

PATIENT
  Sex: Female

DRUGS (2)
  1. MEKTOVI [Suspect]
     Active Substance: BINIMETINIB
     Indication: Skin cancer
     Dosage: 45 MG TWICE  DAY ORAL ?
     Route: 048
  2. BRAFTOVI [Suspect]
     Active Substance: ENCORAFENIB
     Indication: Malignant melanoma
     Dosage: 600 MG TWICE A DAY ORAL
     Route: 048

REACTIONS (6)
  - Pyrexia [None]
  - Fatigue [None]
  - Arthralgia [None]
  - Dizziness [None]
  - Dehydration [None]
  - Loss of consciousness [None]
